FAERS Safety Report 15670826 (Version 1)
Quarter: 2018Q4

REPORT INFORMATION
  Report Type: Spontaneous
  Country: FR (occurrence: FR)
  Receive Date: 20181129
  Receipt Date: 20181129
  Transmission Date: 20190205
  Serious: Yes (Other)
  Sender: FDA-Public Use
  Company Number: PHHY2018FR141292

PATIENT
  Age: 56 Year
  Sex: Female

DRUGS (4)
  1. RASAGILINE. [Interacting]
     Active Substance: RASAGILINE
     Indication: PARKINSON^S DISEASE
     Dosage: 1 MG, QD
     Route: 065
  2. ROPINIROLE. [Suspect]
     Active Substance: ROPINIROLE
     Indication: PARKINSON^S DISEASE
     Dosage: 8 MG, QD
     Route: 065
  3. LEVODOPA [Suspect]
     Active Substance: LEVODOPA
     Indication: PARKINSON^S DISEASE
     Dosage: 200 MG, QD
     Route: 065
  4. PRAMIPEXOLE. [Interacting]
     Active Substance: PRAMIPEXOLE
     Indication: PARKINSON^S DISEASE
     Dosage: 1.57 MG, QD
     Route: 065

REACTIONS (8)
  - Hair disorder [Not Recovered/Not Resolved]
  - Trichotillomania [Not Recovered/Not Resolved]
  - Skin abrasion [Not Recovered/Not Resolved]
  - Superinfection [Not Recovered/Not Resolved]
  - Dermatillomania [Not Recovered/Not Resolved]
  - Obsessive-compulsive disorder [Not Recovered/Not Resolved]
  - Drug interaction [Not Recovered/Not Resolved]
  - Alopecia [Not Recovered/Not Resolved]
